FAERS Safety Report 18301834 (Version 1)
Quarter: 2020Q3

REPORT INFORMATION
  Report Type: Spontaneous
  Country: US (occurrence: US)
  Receive Date: 20200923
  Receipt Date: 20200923
  Transmission Date: 20201103
  Serious: No
  Sender: FDA-Public Use
  Company Number: US-MYLANLABS-2020M1079553

PATIENT
  Age: 91 Year
  Sex: Female

DRUGS (2)
  1. BUDESONIDE. [Suspect]
     Active Substance: BUDESONIDE
     Indication: PRODUCT USED FOR UNKNOWN INDICATION
     Dosage: UNK
  2. PERFOROMIST [Suspect]
     Active Substance: FORMOTEROL FUMARATE DIHYDRATE
     Indication: EMPHYSEMA
     Dosage: UNK UNK, BID

REACTIONS (2)
  - Therapeutic product effect incomplete [Unknown]
  - Inappropriate schedule of product administration [Not Recovered/Not Resolved]
